FAERS Safety Report 7399790-8 (Version None)
Quarter: 2011Q2

REPORT INFORMATION
  Report Type: 
  Country: None (occurrence: None)
  Receive Date: 20110407
  Receipt Date: 20110328
  Transmission Date: 20111010
  Serious: Yes (Other)
  Sender: FDA-Public Use
  Company Number: TR-ROCHE-767962

PATIENT
  Age: 58 Year
  Sex: Female

DRUGS (2)
  1. CAPECITABINE [Suspect]
     Dosage: RESTARTED, FOUR CYCLES
     Route: 048
  2. CAPECITABINE [Suspect]
     Indication: BREAST CANCER METASTATIC
     Dosage: FREQUENCY: DAILY
     Route: 048

REACTIONS (1)
  - INTRACRANIAL HYPOTENSION [None]
